FAERS Safety Report 20119045 (Version 5)
Quarter: 2023Q1

REPORT INFORMATION
  Report Type: Spontaneous
  Country: DE (occurrence: DE)
  Receive Date: 20211126
  Receipt Date: 20230327
  Transmission Date: 20230418
  Serious: Yes (Hospitalization, Other)
  Sender: FDA-Public Use
  Company Number: DE-BRISTOL-MYERS SQUIBB COMPANY-BMS-2021-126735

PATIENT
  Age: 72 Year
  Sex: Male
  Weight: 82.5 kg

DRUGS (20)
  1. AZACITIDINE [Suspect]
     Active Substance: AZACITIDINE
     Indication: Myelodysplastic syndrome
     Dosage: ON 7 DAYS WITHIN THE FIRST 9 CALENDAR DAYS OF EACH 28-DAY CYCLE
     Route: 058
     Dates: start: 20210913, end: 20210921
  2. AZACITIDINE [Suspect]
     Active Substance: AZACITIDINE
     Dosage: ON 7 DAYS WITHIN THE FIRST 9 CALENDAR DAYS OF EACH 28-DAY CYCLE
     Route: 058
     Dates: start: 20211129
  3. APIXABAN [Suspect]
     Active Substance: APIXABAN
     Indication: Cerebrovascular accident prophylaxis
     Dosage: 5 MILLIGRAM, BID
     Route: 048
     Dates: start: 201908
  4. VENETOCLAX [Suspect]
     Active Substance: VENETOCLAX
     Indication: Myelodysplastic syndrome
     Dosage: 400 MG DAYS 1 - 14 OF EACH 28 DAY CYCLE, EVERY 1 DAYS; 400 MG DAYS 1 - 14 OF EACH 28 DAY  CYCLE, EVE
     Route: 048
     Dates: start: 20210913, end: 20210926
  5. VENETOCLAX [Suspect]
     Active Substance: VENETOCLAX
     Route: 048
     Dates: start: 20211129
  6. NEBIVOLOL AL [Concomitant]
     Indication: Hypertension
     Dosage: 1 IN 1 D
     Route: 048
  7. NEBIVOLOL AL [Concomitant]
     Dosage: 2.5 MILLIGRAM, QD
     Route: 048
     Dates: start: 2019
  8. CANDESARTAN AL [Concomitant]
     Indication: Hypertension
     Dosage: 1 IN 1 D
     Route: 048
  9. CANDESARTAN AL [Concomitant]
     Dosage: 16 MILLIGRAM, QD
     Route: 048
     Dates: start: 2019
  10. PREGABALIN [Concomitant]
     Active Substance: PREGABALIN
     Indication: Tremor
     Dosage: 1 IN 1 D
     Route: 048
  11. PREGABALIN [Concomitant]
     Active Substance: PREGABALIN
     Dosage: 75 MILLIGRAM, QD
     Route: 048
     Dates: start: 2017
  12. ALLOPURINOL [Concomitant]
     Active Substance: ALLOPURINOL
     Indication: Nephropathy
     Dosage: 1 IN 1 D
     Route: 048
     Dates: start: 20190801
  13. PREDNISOLONE ACETATE [Concomitant]
     Active Substance: PREDNISOLONE ACETATE
     Indication: Oedema peripheral
     Dosage: 5 MILLIGRAM, QD
     Route: 048
     Dates: start: 2019
  14. FLECAINID AWD [Concomitant]
     Indication: Hypertension
     Dosage: 100 MILLIGRAM, BID
     Route: 048
     Dates: start: 201908, end: 20211013
  15. TORSEMIDE [Concomitant]
     Active Substance: TORSEMIDE
     Indication: Hypertension
     Dosage: 10 MILLIGRAM, QD
     Route: 048
     Dates: start: 2019
  16. ATORVASTATIN [Concomitant]
     Active Substance: ATORVASTATIN
     Indication: Hypercholesterolaemia
     Dosage: 40 MILLIGRAM, QD
     Route: 048
     Dates: start: 2019
  17. GLYCOPYRRONIUM\INDACATEROL [Concomitant]
     Active Substance: GLYCOPYRRONIUM\INDACATEROL
     Indication: Chronic obstructive pulmonary disease
     Dosage: 50/100 UG (1 IN 1 D)
     Dates: start: 2011
  18. PANTOPRAZOLE SODIUM [Concomitant]
     Active Substance: PANTOPRAZOLE SODIUM
     Indication: Gastrointestinal disorder prophylaxis
     Dosage: 20 MILLIGRAM, QD
     Route: 048
     Dates: start: 201908
  19. CHOLECALCIFEROL [Concomitant]
     Active Substance: CHOLECALCIFEROL
     Indication: Vitamin D deficiency
     Dosage: 2000 INTERNATIONAL UNIT, QWK
     Route: 048
     Dates: start: 2016
  20. SODIUM CHLORIDE [Concomitant]
     Active Substance: SODIUM CHLORIDE
     Indication: Tumour lysis syndrome
     Dosage: 500 MILLILITER
     Route: 042
     Dates: start: 20210917, end: 20210917

REACTIONS (3)
  - Pyrexia [Recovered/Resolved]
  - Neutropenia [Recovered/Resolved]
  - Thrombocytopenia [Unknown]

NARRATIVE: CASE EVENT DATE: 20211002
